FAERS Safety Report 4707250-5 (Version None)
Quarter: 2005Q3

REPORT INFORMATION
  Report Type: 
  Country: None (occurrence: None)
  Receive Date: 20050701
  Receipt Date: 20050616
  Transmission Date: 20060218
  Serious: Yes (Death)
  Sender: FDA-Public Use
  Company Number: 11641

PATIENT
  Age: 75 Year
  Sex: Female

DRUGS (1)
  1. AMIODARONE HCL [Suspect]
     Indication: SUPRAVENTRICULAR TACHYCARDIA
     Dosage: IV
     Route: 042
     Dates: start: 20020101

REACTIONS (4)
  - CHOLESTASIS [None]
  - ENCEPHALOPATHY [None]
  - HEPATITIS ACUTE [None]
  - PROTHROMBIN TIME PROLONGED [None]
